FAERS Safety Report 8852893 (Version 1)
Quarter: 2012Q4

REPORT INFORMATION
  Report Type: 
  Country: CA (occurrence: CA)
  Receive Date: 20121022
  Receipt Date: 20121022
  Transmission Date: 20130627
  Serious: Yes (Death, Hospitalization)
  Sender: FDA-Public Use
  Company Number: CA-PERRIGO-12CA008984

PATIENT
  Age: 86 Year
  Sex: Male

DRUGS (2)
  1. IMIQUIMOD [Suspect]
     Indication: ACTINIC KERATOSIS
     Dosage: Applied for less then 2 weeks
     Route: 061
  2. IMIQUIMOD [Suspect]
     Indication: CHEILITIS

REACTIONS (7)
  - Multi-organ failure [Fatal]
  - Sepsis [Fatal]
  - Pemphigus [Unknown]
  - Skin exfoliation [Unknown]
  - Dermatitis bullous [None]
  - Scab [Unknown]
  - Blister [Unknown]
